FAERS Safety Report 15158135 (Version 1)
Quarter: 2018Q3

REPORT INFORMATION
  Report Type: Spontaneous
  Country: US (occurrence: US)
  Receive Date: 20180718
  Receipt Date: 20180718
  Transmission Date: 20181010
  Serious: No
  Sender: FDA-Public Use
  Company Number: US-ALLERGAN-1727742US

PATIENT
  Age: 40 Year
  Sex: Female

DRUGS (1)
  1. NAMENDA XR [Suspect]
     Active Substance: MEMANTINE HYDROCHLORIDE
     Indication: DEMENTIA
     Dosage: 28 MG, QD
     Route: 048
     Dates: start: 201606, end: 2016

REACTIONS (8)
  - Drug ineffective [Unknown]
  - Nausea [Recovered/Resolved]
  - Sleep disorder [Recovered/Resolved]
  - Urinary tract infection [Recovered/Resolved]
  - Cardiac disorder [Recovered/Resolved]
  - Amnesia [Recovering/Resolving]
  - Feeling abnormal [Recovered/Resolved]
  - Bladder disorder [Recovered/Resolved]
